FAERS Safety Report 14842169 (Version 1)
Quarter: 2018Q2

REPORT INFORMATION
  Report Type: Spontaneous
  Country: NL (occurrence: NL)
  Receive Date: 20180503
  Receipt Date: 20180503
  Transmission Date: 20180711
  Serious: Yes (Other)
  Sender: FDA-Public Use
  Company Number: NL-ROCHE-2113689

PATIENT
  Age: 29 Year
  Sex: Male

DRUGS (5)
  1. CERITINIB [Suspect]
     Active Substance: CERITINIB
     Indication: LUNG ADENOCARCINOMA
     Route: 065
     Dates: start: 201707, end: 201709
  2. CARBOPLATIN. [Suspect]
     Active Substance: CARBOPLATIN
     Indication: LUNG ADENOCARCINOMA
     Route: 065
     Dates: start: 201604, end: 201709
  3. CRIZOTINIB [Suspect]
     Active Substance: CRIZOTINIB
     Indication: LUNG ADENOCARCINOMA
     Route: 065
     Dates: start: 201609, end: 201707
  4. ALIMTA [Suspect]
     Active Substance: PEMETREXED DISODIUM
     Indication: LUNG ADENOCARCINOMA
     Route: 065
  5. AVASTIN [Suspect]
     Active Substance: BEVACIZUMAB
     Indication: LUNG ADENOCARCINOMA
     Route: 065
     Dates: start: 201604, end: 201609

REACTIONS (2)
  - Transaminases increased [Unknown]
  - Lung neoplasm malignant [Unknown]
